FAERS Safety Report 13278920 (Version 2)
Quarter: 2018Q1

REPORT INFORMATION
  Report Type: Spontaneous
  Country: US (occurrence: US)
  Receive Date: 20170228
  Receipt Date: 20180223
  Transmission Date: 20180508
  Serious: No
  Sender: FDA-Public Use
  Company Number: US-IMPAX LABORATORIES, INC-2016-IPXL-02508

PATIENT
  Sex: Male

DRUGS (1)
  1. EMVERM [Suspect]
     Active Substance: MEBENDAZOLE
     Indication: ENTEROBIASIS
     Dosage: 100 MG, ONE TABLET, EVERY 2WK
     Route: 048
     Dates: start: 20161123

REACTIONS (2)
  - Drug effect incomplete [Not Recovered/Not Resolved]
  - Product prescribing issue [Unknown]

NARRATIVE: CASE EVENT DATE: 2016
